FAERS Safety Report 9435132 (Version 1)
Quarter: 2013Q3

REPORT INFORMATION
  Report Type: Spontaneous
  Country: US (occurrence: US)
  Receive Date: 20130801
  Receipt Date: 20130801
  Transmission Date: 20140515
  Serious: Yes (Other)
  Sender: FDA-Public Use
  Company Number: CHPA2013US012002

PATIENT
  Age: 79 Year
  Sex: Female

DRUGS (1)
  1. PERDIEM OVERNIGHT RELIEF PILLS [Suspect]
     Indication: LAXATIVE SUPPORTIVE CARE
     Dosage: 2 DF, QHS
     Route: 048
     Dates: start: 2010

REACTIONS (2)
  - Neoplasm malignant [Unknown]
  - Incorrect drug administration duration [Unknown]
